FAERS Safety Report 13781035 (Version 1)
Quarter: 2017Q3

REPORT INFORMATION
  Report Type: Spontaneous
  Country: US (occurrence: US)
  Receive Date: 20170722
  Receipt Date: 20170722
  Transmission Date: 20171127
  Serious: Yes (Life-Threatening, Hospitalization)
  Sender: FDA-Public Use
  Company Number: None

PATIENT
  Age: 42 Year
  Sex: Female

DRUGS (1)
  1. TRANEXAMIC ACID. [Suspect]
     Active Substance: TRANEXAMIC ACID
     Indication: MENORRHAGIA
     Dosage: ?          OTHER STRENGTH:MG;QUANTITY:2 TABLET(S);?
     Route: 048
     Dates: start: 20170717, end: 20170721

REACTIONS (7)
  - Groin pain [None]
  - Decreased appetite [None]
  - Muscular weakness [None]
  - Dizziness [None]
  - Balance disorder [None]
  - Gait disturbance [None]
  - Heart rate increased [None]

NARRATIVE: CASE EVENT DATE: 20170717
